FAERS Safety Report 18347094 (Version 2)
Quarter: 2021Q2

REPORT INFORMATION
  Report Type: Spontaneous
  Country: US (occurrence: US)
  Receive Date: 20201005
  Receipt Date: 20210514
  Transmission Date: 20210717
  Serious: Yes (Other)
  Sender: FDA-Public Use
  Company Number: US-SA-2020SA271572

PATIENT
  Age: 76 Year

DRUGS (2)
  1. ZANTAC [Suspect]
     Active Substance: RANITIDINE HYDROCHLORIDE
     Dosage: UNK
     Dates: start: 1992, end: 2020
  2. ZANTAC [Suspect]
     Active Substance: RANITIDINE HYDROCHLORIDE
     Dosage: 150 MG, OTHER
     Dates: start: 198001, end: 199201

REACTIONS (3)
  - Thyroid cancer [Unknown]
  - Breast cancer stage III [Unknown]
  - Colorectal cancer [Unknown]

NARRATIVE: CASE EVENT DATE: 19911201
